FAERS Safety Report 8073761-0 (Version None)
Quarter: 2012Q1

REPORT INFORMATION
  Report Type: 
  Country: None (occurrence: None)
  Receive Date: 20120126
  Receipt Date: 20120119
  Transmission Date: 20120608
  Serious: Yes (Hospitalization)
  Sender: FDA-Public Use
  Company Number: CA-ROXANE LABORATORIES, INC.-2012-RO-00500RO

PATIENT
  Age: 83 Year
  Sex: Male

DRUGS (9)
  1. POTASSIUM CHLORIDE [Suspect]
     Route: 048
  2. BISOPROLOL FUMARATE [Suspect]
     Dosage: 2.5 MG
     Route: 048
  3. ISOSORBIDE MONONITRATE [Suspect]
     Dosage: 30 MG
     Route: 048
  4. CLARITHROMYCIN [Suspect]
     Indication: PNEUMONIA
     Dosage: 1000 MG
     Route: 048
  5. PRAVASTATIN [Suspect]
     Dosage: 40 MG
     Route: 048
  6. SPIRONOLACTONE [Suspect]
     Dosage: 25 MG
     Route: 048
  7. DIGOXIN [Suspect]
     Dosage: 0.125 MG
     Route: 048
  8. FUROSEMIDE [Suspect]
     Dosage: 60 MG
     Route: 048
  9. CAPTOPRIL [Suspect]
     Dosage: 50 MG
     Route: 048

REACTIONS (2)
  - RENAL IMPAIRMENT [None]
  - TOXICITY TO VARIOUS AGENTS [None]
